FAERS Safety Report 6020813-2 (Version None)
Quarter: 2008Q4

REPORT INFORMATION
  Report Type: 
  Country: None (occurrence: None)
  Receive Date: 20081229
  Receipt Date: 20081222
  Transmission Date: 20090506
  Serious: Yes (Other)
  Sender: FDA-Public Use
  Company Number: GR-JNJFOC-20081205787

PATIENT
  Age: 71 Year
  Sex: Female

DRUGS (3)
  1. TAVANIC [Suspect]
     Indication: URINARY TRACT INFECTION
     Route: 048
  2. OMEPRAZOLE [Concomitant]
     Indication: DYSPEPSIA
     Route: 065
  3. STILNOX [Concomitant]
     Indication: TACHYCARDIA
     Dosage: 1/2*1
     Route: 065

REACTIONS (2)
  - DYSKINESIA [None]
  - TACHYCARDIA [None]
